FAERS Safety Report 8111352-3 (Version None)
Quarter: 2012Q1

REPORT INFORMATION
  Report Type: 
  Country: None (occurrence: None)
  Receive Date: 20120203
  Receipt Date: 20110915
  Transmission Date: 20120608
  Serious: Yes (Hospitalization)
  Sender: FDA-Public Use
  Company Number: US-GLAXOSMITHKLINE-A0945715A

PATIENT
  Age: 63 Year
  Sex: Female
  Weight: 75 kg

DRUGS (9)
  1. OXYCODONE HCL [Concomitant]
  2. HYDROCODONE BITARTRATE [Concomitant]
  3. LAMICTAL [Suspect]
     Indication: DEPRESSION
     Dosage: 100MG PER DAY
     Route: 065
     Dates: start: 20110101, end: 20110502
  4. CYMBALTA [Concomitant]
  5. LIDOCAINE [Concomitant]
  6. FISH OIL [Concomitant]
  7. LYRICA [Concomitant]
     Route: 048
  8. AMBIEN [Concomitant]
  9. XANAX [Concomitant]

REACTIONS (1)
  - HALLUCINATION [None]
